FAERS Safety Report 20857856 (Version 3)
Quarter: 2022Q2

REPORT INFORMATION
  Report Type: Spontaneous
  Country: JP (occurrence: JP)
  Receive Date: 20220521
  Receipt Date: 20220627
  Transmission Date: 20220720
  Serious: Yes (Life-Threatening, Disabling, Other)
  Sender: FDA-Public Use
  Company Number: JP-BAYER-2022A070835

PATIENT
  Age: 8 Decade
  Sex: Male

DRUGS (2)
  1. RIVAROXABAN [Suspect]
     Active Substance: RIVAROXABAN
     Indication: Emphysema
     Dosage: UNK
     Route: 048
     Dates: start: 20190930, end: 20210114
  2. RIVAROXABAN [Suspect]
     Active Substance: RIVAROXABAN
     Route: 048

REACTIONS (3)
  - Arterial rupture [Recovered/Resolved with Sequelae]
  - Mediastinal haematoma [Recovered/Resolved with Sequelae]
  - Spinal cord paralysis [Unknown]

NARRATIVE: CASE EVENT DATE: 20210114
